FAERS Safety Report 12972646 (Version 1)
Quarter: 2016Q4

REPORT INFORMATION
  Report Type: Spontaneous
  Country: GB (occurrence: GB)
  Receive Date: 20161124
  Receipt Date: 20161124
  Transmission Date: 20170207
  Serious: Yes (Other)
  Sender: FDA-Public Use
  Company Number: GB-AUROBINDO-AUR-APL-2016-14081

PATIENT
  Age: 70 Year
  Sex: Female

DRUGS (2)
  1. PROPRANOLOL [Suspect]
     Active Substance: PROPRANOLOL\PROPRANOLOL HYDROCHLORIDE
     Indication: HAEMORRHAGE PROPHYLAXIS
     Dosage: 2 DF, UNK
     Route: 065
     Dates: start: 201607
  2. CARVEDILOL TABLETS 6.25MG [Suspect]
     Active Substance: CARVEDILOL
     Indication: HAEMORRHAGE PROPHYLAXIS
     Dosage: 5 DF, UNK
     Dates: start: 201609

REACTIONS (5)
  - Dry eye [Not Recovered/Not Resolved]
  - Nightmare [Recovering/Resolving]
  - Off label use [Unknown]
  - Sudden hearing loss [Not Recovered/Not Resolved]
  - Visual impairment [Not Recovered/Not Resolved]
